FAERS Safety Report 4501848-5 (Version None)
Quarter: 2004Q4

REPORT INFORMATION
  Report Type: 
  Country: None (occurrence: None)
  Receive Date: 20041115
  Receipt Date: 20041115
  Transmission Date: 20050328
  Serious: Yes (Other)
  Sender: FDA-Public Use
  Company Number: None

PATIENT
  Age: 53 Year
  Sex: Female
  Weight: 54.8852 kg

DRUGS (6)
  1. BEXTRA [Suspect]
     Indication: RHEUMATOID ARTHRITIS
     Dosage: 10 MG 1 Q DAY BUCCAL
     Route: 002
     Dates: start: 20040130, end: 20041109
  2. METHOTREXATE [Concomitant]
  3. FOLIC ACID [Concomitant]
  4. LEXAPRO [Concomitant]
  5. FOSAMAX [Concomitant]
  6. PREVACID [Concomitant]

REACTIONS (10)
  - BURNING SENSATION [None]
  - CONDITION AGGRAVATED [None]
  - CREST SYNDROME [None]
  - DERMATITIS EXFOLIATIVE [None]
  - DRY SKIN [None]
  - ERYTHEMA [None]
  - PHARYNGOLARYNGEAL PAIN [None]
  - RHEUMATOID ARTHRITIS [None]
  - SCLERODERMA [None]
  - SKIN DESQUAMATION [None]
